FAERS Safety Report 6054222-7 (Version None)
Quarter: 2009Q1

REPORT INFORMATION
  Report Type: 
  Country: None (occurrence: None)
  Receive Date: 20090127
  Receipt Date: 20090122
  Transmission Date: 20090719
  Serious: Yes (Other)
  Sender: FDA-Public Use
  Company Number: TW-JNJCH-2009001960

PATIENT
  Age: 60 Year
  Sex: Female

DRUGS (1)
  1. REGAINE 5% [Suspect]
     Indication: ALOPECIA
     Dosage: TEXT:UNSPECIFIED
     Route: 061

REACTIONS (2)
  - VISION BLURRED [None]
  - WRONG DRUG ADMINISTERED [None]
